FAERS Safety Report 23165677 (Version 3)
Quarter: 2023Q4

REPORT INFORMATION
  Report Type: Spontaneous
  Country: CN (occurrence: CN)
  Receive Date: 20231109
  Receipt Date: 20231122
  Transmission Date: 20240110
  Serious: Yes (Other)
  Sender: FDA-Public Use
  Company Number: CN-PFIZER INC-PV202300180403

PATIENT
  Age: 51 Year
  Sex: Female

DRUGS (4)
  1. CYTARABINE [Suspect]
     Active Substance: CYTARABINE
     Indication: Acute myeloid leukaemia
     Dosage: 0.2 G, CYCLIC, DAY 1-5
     Dates: start: 20210822
  2. CYTARABINE [Suspect]
     Active Substance: CYTARABINE
     Dosage: 0.2 G, CYCLIC, DAY 1-5
     Dates: start: 20211014
  3. IDARUBICIN HYDROCHLORIDE [Suspect]
     Active Substance: IDARUBICIN HYDROCHLORIDE
     Indication: Acute myeloid leukaemia
     Dosage: 10 MG, CYCLIC, DAY 1-3
     Dates: start: 20210822
  4. IDARUBICIN HYDROCHLORIDE [Suspect]
     Active Substance: IDARUBICIN HYDROCHLORIDE
     Dosage: 10 MG, CYCLIC, DAY 1-3
     Dates: start: 20211014

REACTIONS (3)
  - Myelosuppression [Recovered/Resolved]
  - Agranulocytosis [Recovered/Resolved]
  - Platelet count decreased [Recovered/Resolved]
